FAERS Safety Report 8121750-X (Version None)
Quarter: 2012Q1

REPORT INFORMATION
  Report Type: 
  Country: None (occurrence: None)
  Receive Date: 20120208
  Receipt Date: 20120206
  Transmission Date: 20120608
  Serious: Yes (Other)
  Sender: FDA-Public Use
  Company Number: US-TEVA-314528USA

PATIENT
  Sex: Male

DRUGS (1)
  1. CLARAVIS [Suspect]

REACTIONS (1)
  - DRUG DEPENDENCE [None]
